FAERS Safety Report 25352608 (Version 2)
Quarter: 2025Q2

REPORT INFORMATION
  Report Type: Spontaneous
  Country: US (occurrence: US)
  Receive Date: 20250523
  Receipt Date: 20250626
  Transmission Date: 20250716
  Serious: No
  Sender: VERTEX
  Company Number: US-VERTEX PHARMACEUTICALS-2025-008029

PATIENT
  Age: 8 Year
  Sex: Female

DRUGS (2)
  1. TRIKAFTA [Suspect]
     Active Substance: ELEXACAFTOR\IVACAFTOR\TEZACAFTOR
     Indication: Cystic fibrosis
     Route: 048
  2. TRIKAFTA [Suspect]
     Active Substance: ELEXACAFTOR\IVACAFTOR\TEZACAFTOR
     Dosage: 1 PILL EVENING
     Route: 048

REACTIONS (10)
  - Cholelithiasis [Unknown]
  - Yellow skin [Unknown]
  - Skin discolouration [Unknown]
  - Back pain [Unknown]
  - Liver injury [Not Recovered/Not Resolved]
  - Muscle fatigue [Unknown]
  - Nausea [Unknown]
  - Skin odour abnormal [Unknown]
  - Hair growth abnormal [Unknown]
  - Abdominal pain upper [Not Recovered/Not Resolved]
